FAERS Safety Report 8916524 (Version 2)
Quarter: 2012Q4

REPORT INFORMATION
  Report Type: Report from Study
  Country: DE (occurrence: DE)
  Receive Date: 20121120
  Receipt Date: 20121126
  Transmission Date: 20130627
  Serious: Yes (Death, Other)
  Sender: FDA-Public Use
  Company Number: DE-ROCHE-760878

PATIENT
  Age: 80 Year
  Sex: Female
  Weight: 68 kg

DRUGS (6)
  1. METHOXY POLYETHYLENE GLYCOL-EPOETIN BETA [Suspect]
     Indication: NEPHROGENIC ANAEMIA
     Route: 042
     Dates: start: 20100825, end: 20101126
  2. METHOXY POLYETHYLENE GLYCOL-EPOETIN BETA [Suspect]
     Dosage: INCREASED DOSAGE
     Route: 042
     Dates: start: 20101228, end: 20101228
  3. METHOXY POLYETHYLENE GLYCOL-EPOETIN BETA [Suspect]
     Route: 042
  4. METHOXY POLYETHYLENE GLYCOL-EPOETIN BETA [Suspect]
     Route: 042
  5. METHOXY POLYETHYLENE GLYCOL-EPOETIN BETA [Suspect]
     Route: 042
     Dates: start: 20110318, end: 20110417
  6. METHOXY POLYETHYLENE GLYCOL-EPOETIN BETA [Suspect]
     Route: 042

REACTIONS (4)
  - Cardiac arrest [Fatal]
  - Gastritis haemorrhagic [Unknown]
  - Haemoglobin decreased [Not Recovered/Not Resolved]
  - Haemoglobin decreased [Unknown]
